FAERS Safety Report 5068679-1 (Version None)
Quarter: 2006Q3

REPORT INFORMATION
  Report Type: 
  Country: None (occurrence: None)
  Receive Date: 20060802
  Receipt Date: 20060210
  Transmission Date: 20061208
  Serious: No
  Sender: FDA-Public Use
  Company Number: US-BRISTOL-MYERS SQUIBB COMPANY-13278676

PATIENT
  Age: 78 Year
  Sex: Female
  Weight: 63 kg

DRUGS (4)
  1. COUMADIN [Suspect]
     Indication: TRANSIENT ISCHAEMIC ATTACK
     Dosage: TAKING VARYING DOSES INITIATED A FEW YEARS AGO
  2. COUMADIN [Suspect]
     Indication: ATRIAL FIBRILLATION
     Dosage: TAKING VARYING DOSES INITIATED A FEW YEARS AGO
  3. COUMADIN [Suspect]
     Indication: RHEUMATIC FEVER
     Dosage: TAKING VARYING DOSES INITIATED A FEW YEARS AGO
  4. ACETAMINOPHEN [Concomitant]

REACTIONS (1)
  - INTERNATIONAL NORMALISED RATIO FLUCTUATION [None]
